FAERS Safety Report 5033202-4 (Version None)
Quarter: 2006Q2

REPORT INFORMATION
  Report Type: 
  Country: None (occurrence: None)
  Receive Date: 20060620
  Receipt Date: 20060608
  Transmission Date: 20061013
  Serious: Yes (Life-Threatening, Other)
  Sender: FDA-Public Use
  Company Number: 163-21880-06010628

PATIENT
  Age: 59 Year
  Sex: Female

DRUGS (11)
  1. REVLIMID [Suspect]
     Indication: MYELODYSPLASTIC SYNDROME
     Dosage: SEE IMAGE
     Route: 048
     Dates: start: 20060120, end: 20060125
  2. REVLIMID [Suspect]
     Indication: MYELODYSPLASTIC SYNDROME
     Dosage: SEE IMAGE
     Route: 048
     Dates: start: 20060217, end: 20060601
  3. REVLIMID [Suspect]
     Indication: MYELODYSPLASTIC SYNDROME
     Dosage: SEE IMAGE
     Route: 048
     Dates: start: 20060601
  4. DESFERAL (DEFEROXAMINE MESILATE) [Concomitant]
  5. ARANESP [Concomitant]
  6. VIDAZA [Concomitant]
  7. ESTRADIOL [Concomitant]
  8. ACIPHEX [Concomitant]
  9. DETROL LA [Concomitant]
  10. EFFEXOR [Concomitant]
  11. G-CSF (GRANULOCYTE COLONY STIMULATING FACTOR) [Concomitant]

REACTIONS (9)
  - ATELECTASIS [None]
  - HAEMOGLOBIN DECREASED [None]
  - NEUTROPENIA [None]
  - PNEUMONIA [None]
  - RASH ERYTHEMATOUS [None]
  - RASH PRURITIC [None]
  - SERUM FERRITIN INCREASED [None]
  - THROMBOCYTOPENIA [None]
  - WHITE BLOOD CELL COUNT DECREASED [None]
